FAERS Safety Report 5409386-2 (Version None)
Quarter: 2007Q3

REPORT INFORMATION
  Report Type: 
  Country: None (occurrence: None)
  Receive Date: 20070808
  Receipt Date: 20070808
  Transmission Date: 20080115
  Serious: Yes (Hospitalization)
  Sender: FDA-Public Use
  Company Number: None

PATIENT
  Age: 80 Year
  Sex: Male

DRUGS (2)
  1. LACTULOSE [Suspect]
     Indication: LIVER DISORDER
     Dosage: 20GM EVERY DAY PO
     Route: 048
     Dates: start: 20051201, end: 20070803
  2. METOPROLOL SUCCINATE [Suspect]
     Dosage: 50MG EVERY DAY PO
     Route: 048
     Dates: start: 20051201, end: 20070803

REACTIONS (4)
  - BRADYCARDIA [None]
  - DEHYDRATION [None]
  - HYPOTENSION [None]
  - RENAL FAILURE ACUTE [None]
